FAERS Safety Report 9243022 (Version 1)
Quarter: 2013Q2

REPORT INFORMATION
  Report Type: Spontaneous
  Country: US (occurrence: US)
  Receive Date: 20130419
  Receipt Date: 20130419
  Transmission Date: 20140414
  Serious: Yes (Death, Other)
  Sender: FDA-Public Use
  Company Number: PHHY2013US038455

PATIENT
  Sex: Female

DRUGS (3)
  1. CARBOPLATIN [Suspect]
     Indication: OVARIAN CANCER
     Dosage: UNK UKN, UNK
  2. PACLITAXEL [Suspect]
     Indication: OVARIAN CANCER
  3. PEGYLATED LIPOSOMAL DOXORUBICIN HYDROCHLORIDE [Suspect]
     Indication: OVARIAN CANCER
     Dosage: 1120 MG/M2, UNK

REACTIONS (3)
  - Cardiac failure congestive [Fatal]
  - Renal failure chronic [Fatal]
  - Ovarian cancer recurrent [Unknown]
